FAERS Safety Report 6395885-6 (Version None)
Quarter: 2009Q4

REPORT INFORMATION
  Report Type: 
  Country: None (occurrence: None)
  Receive Date: 20091009
  Receipt Date: 20090810
  Transmission Date: 20100525
  Serious: No
  Sender: FDA-Public Use
  Company Number: A0801362A

PATIENT
  Age: 59 Year
  Sex: Female

DRUGS (8)
  1. TYKERB [Suspect]
     Indication: BREAST CANCER
     Dosage: 250MG PER DAY
     Route: 048
     Dates: start: 20090804
  2. SYNTHROID [Concomitant]
  3. ENALAPRIL MALEATE [Concomitant]
  4. COREG [Concomitant]
  5. ESOMEPRAZOLE [Concomitant]
  6. MIACALCIN [Concomitant]
  7. LEVAQUIN [Concomitant]
  8. COUGH DROPS [Concomitant]

REACTIONS (7)
  - AGEUSIA [None]
  - COUGH [None]
  - DIARRHOEA [None]
  - DRY MOUTH [None]
  - NAUSEA [None]
  - PYREXIA [None]
  - TONGUE DISCOLOURATION [None]
